FAERS Safety Report 13402212 (Version 1)
Quarter: 2017Q2

REPORT INFORMATION
  Report Type: Spontaneous
  Country: AT (occurrence: AT)
  Receive Date: 20170404
  Receipt Date: 20170404
  Transmission Date: 20170830
  Serious: Yes (Congenital Anomaly)
  Sender: FDA-Public Use
  Company Number: AT-JNJFOC-20170332217

PATIENT

DRUGS (1)
  1. STELARA [Suspect]
     Active Substance: USTEKINUMAB
     Indication: PSORIASIS
     Route: 064
     Dates: start: 20130410, end: 20140403

REACTIONS (2)
  - Foetal exposure during pregnancy [Recovered/Resolved]
  - Aortic stenosis [Unknown]
